FAERS Safety Report 6963776-5 (Version None)
Quarter: 2010Q3

REPORT INFORMATION
  Report Type: 
  Country: None (occurrence: None)
  Receive Date: 20100902
  Receipt Date: 20100823
  Transmission Date: 20110219
  Serious: Yes (Hospitalization)
  Sender: FDA-Public Use
  Company Number: US-WYE-H17105210

PATIENT
  Age: 49 Year
  Sex: Male

DRUGS (2)
  1. BENEFIX [Suspect]
     Indication: FACTOR IX DEFICIENCY
     Dosage: 2500 UNITS
     Route: 058
     Dates: start: 20100101, end: 20100101
  2. BENEFIX [Suspect]
     Indication: JOINT SWELLING

REACTIONS (3)
  - CELLULITIS [None]
  - EXTRAVASATION [None]
  - THROMBOPHLEBITIS SUPERFICIAL [None]
